FAERS Safety Report 4712039-7 (Version None)
Quarter: 2005Q3

REPORT INFORMATION
  Report Type: 
  Country: None (occurrence: None)
  Receive Date: 20050712
  Receipt Date: 20050630
  Transmission Date: 20060218
  Serious: Yes (Hospitalization)
  Sender: FDA-Public Use
  Company Number: US-JNJFOC-20050700527

PATIENT

DRUGS (2)
  1. SPORANOX [Suspect]
     Indication: HISTOPLASMOSIS
     Route: 049
  2. TACROLIMUS [Concomitant]
     Indication: PROPHYLAXIS AGAINST TRANSPLANT REJECTION

REACTIONS (1)
  - KIDNEY TRANSPLANT REJECTION [None]
